FAERS Safety Report 8376054-7 (Version None)
Quarter: 2012Q2

REPORT INFORMATION
  Report Type: 
  Country: None (occurrence: None)
  Receive Date: 20120522
  Receipt Date: 20120514
  Transmission Date: 20120825
  Serious: Yes (Other)
  Sender: FDA-Public Use
  Company Number: PHHY2012US042765

PATIENT
  Age: 43 Year
  Sex: Male

DRUGS (1)
  1. CARBAMAZEPINE [Suspect]
     Indication: CONVULSION

REACTIONS (3)
  - EPIGASTRIC DISCOMFORT [None]
  - PEPTIC ULCER [None]
  - GASTROOESOPHAGEAL REFLUX DISEASE [None]
